FAERS Safety Report 4453529-4 (Version None)
Quarter: 2004Q3

REPORT INFORMATION
  Report Type: 
  Country: None (occurrence: None)
  Receive Date: 20040920
  Receipt Date: 20040907
  Transmission Date: 20050211
  Serious: Yes (Death, Life-Threatening)
  Sender: FDA-Public Use
  Company Number: GB-JNJFOC-20040901692

PATIENT
  Sex: Female

DRUGS (12)
  1. REMICADE [Suspect]
     Indication: RHEUMATOID ARTHRITIS
     Route: 042
  2. METHOTREXATE [Concomitant]
  3. PREDNISOLONE [Concomitant]
  4. ARTHROTEC [Concomitant]
  5. ARTHROTEC [Concomitant]
  6. COD LIVER OIL [Concomitant]
  7. TYLEX [Concomitant]
  8. TYLEX [Concomitant]
  9. TYLEX [Concomitant]
  10. FOLIC ACID [Concomitant]
  11. CALCICHEW [Concomitant]
  12. QUININE SULPHATE [Concomitant]

REACTIONS (1)
  - DEATH [None]
